FAERS Safety Report 5319370-5 (Version None)
Quarter: 2007Q2

REPORT INFORMATION
  Report Type: 
  Country: None (occurrence: None)
  Receive Date: 20070508
  Receipt Date: 20070501
  Transmission Date: 20071010
  Serious: Yes (Hospitalization, Other)
  Sender: FDA-Public Use
  Company Number: US-ELI_LILLY_AND_COMPANY-US200702002770

PATIENT
  Age: 52 Year
  Sex: Male

DRUGS (2)
  1. BYETTA [Suspect]
     Dosage: 5 UG, 2/D
     Route: 058
     Dates: start: 20061019, end: 20061119
  2. BYETTA [Suspect]
     Dosage: 10 UG, 2/D
     Route: 058
     Dates: start: 20061119, end: 20070101

REACTIONS (4)
  - HYPERCOAGULATION [None]
  - INTESTINAL OBSTRUCTION [None]
  - MESENTERIC ARTERY THROMBOSIS [None]
  - PULMONARY EMBOLISM [None]
